FAERS Safety Report 7537042-3 (Version None)
Quarter: 2011Q2

REPORT INFORMATION
  Report Type: 
  Country: None (occurrence: None)
  Receive Date: 20110609
  Receipt Date: 20110526
  Transmission Date: 20111010
  Serious: Yes (Other)
  Sender: FDA-Public Use
  Company Number: PHHY2011MT46336

PATIENT
  Age: 50 Year
  Sex: Male

DRUGS (1)
  1. RASILEZ HCT [Suspect]
     Indication: HYPERTENSION
     Dosage: 300/12.5 MG ONCE DAILY
     Route: 048
     Dates: start: 20100101, end: 20110501

REACTIONS (2)
  - STRESS [None]
  - TACHYCARDIA [None]
